FAERS Safety Report 5205006-0 (Version None)
Quarter: 2007Q1

REPORT INFORMATION
  Report Type: 
  Country: None (occurrence: None)
  Receive Date: 20070110
  Receipt Date: 20060928
  Transmission Date: 20070707
  Serious: No
  Sender: FDA-Public Use
  Company Number: US-BRISTOL-MYERS SQUIBB COMPANY-13525092

PATIENT
  Age: 7 Year
  Sex: Male
  Weight: 36 kg

DRUGS (3)
  1. ABILIFY [Suspect]
     Indication: AUTISM
     Dates: start: 20050901
  2. TENEX [Concomitant]
     Dates: start: 20050901, end: 20060601
  3. COGENTIN [Concomitant]
     Dates: start: 20060801

REACTIONS (1)
  - AKATHISIA [None]
